FAERS Safety Report 21704846 (Version 2)
Quarter: 2023Q1

REPORT INFORMATION
  Report Type: Spontaneous
  Country: US (occurrence: US)
  Receive Date: 20221209
  Receipt Date: 20230222
  Transmission Date: 20230418
  Serious: No
  Sender: FDA-Public Use
  Company Number: US-SA-SAC20221206001350

PATIENT
  Age: 55 Year
  Sex: Female

DRUGS (1)
  1. AUBAGIO [Suspect]
     Active Substance: TERIFLUNOMIDE
     Indication: Multiple sclerosis
     Dosage: 14 MG, QD
     Route: 048
     Dates: start: 20200326

REACTIONS (6)
  - Dizziness [Unknown]
  - Sleep disorder [Unknown]
  - Visual impairment [Unknown]
  - Bladder disorder [Unknown]
  - Fatigue [Unknown]
  - Cognitive disorder [Unknown]
